FAERS Safety Report 5590111-X (Version None)
Quarter: 2008Q1

REPORT INFORMATION
  Report Type: 
  Country: None (occurrence: None)
  Receive Date: 20080114
  Receipt Date: 20070223
  Transmission Date: 20080703
  Serious: No
  Sender: FDA-Public Use
  Company Number: US-ABBOTT-07P-163-0360298-00

PATIENT
  Sex: Female

DRUGS (6)
  1. OMNICEF [Suspect]
     Indication: OTITIS MEDIA
     Route: 048
     Dates: start: 20070205, end: 20070213
  2. OMNICEF [Suspect]
     Indication: LUNG DISORDER
  3. OMNICEF [Suspect]
     Indication: BODY TEMPERATURE INCREASED
  4. OMNICEF [Suspect]
     Indication: INFLAMMATION
  5. IBUPROFEN [Concomitant]
     Indication: DRUG USE FOR UNKNOWN INDICATION
  6. PARACETAMOL [Concomitant]
     Indication: DRUG USE FOR UNKNOWN INDICATION

REACTIONS (4)
  - OEDEMA PERIPHERAL [None]
  - PYREXIA [None]
  - RASH [None]
  - SERUM SICKNESS [None]
